FAERS Safety Report 8593446 (Version 3)
Quarter: 2013Q4

REPORT INFORMATION
  Report Type: Spontaneous
  Country: US (occurrence: US)
  Receive Date: 20120604
  Receipt Date: 20131129
  Transmission Date: 20140711
  Serious: Yes (Hospitalization, Other)
  Sender: FDA-Public Use
  Company Number: US-ASTRAZENECA-2012SE34933

PATIENT
  Age: 24909 Day
  Sex: Female

DRUGS (7)
  1. NEXIUM [Suspect]
     Route: 048
  2. NEXIUM [Suspect]
     Route: 048
     Dates: start: 20090221
  3. PRILOSEC [Suspect]
     Route: 048
  4. PREVACID [Concomitant]
  5. PROTONIX [Concomitant]
  6. ZANTAC [Concomitant]
  7. TAGAMET [Concomitant]

REACTIONS (18)
  - Ankle fracture [Unknown]
  - Ulcer haemorrhage [Unknown]
  - Cerebrovascular accident [Unknown]
  - Suicidal ideation [Unknown]
  - Transient ischaemic attack [Unknown]
  - Arthropathy [Unknown]
  - Osteoporosis [Unknown]
  - Multiple fractures [Unknown]
  - Acute focal bacterial nephritis [Unknown]
  - Facial bones fracture [Unknown]
  - Angina pectoris [Unknown]
  - Arthritis [Unknown]
  - Chronic obstructive pulmonary disease [Unknown]
  - Glaucoma [Unknown]
  - Vitamin D deficiency [Unknown]
  - Cataract [Unknown]
  - Lung disorder [Unknown]
  - Depression [Unknown]
